FAERS Safety Report 16486964 (Version 1)
Quarter: 2019Q2

REPORT INFORMATION
  Report Type: Spontaneous
  Country: US (occurrence: US)
  Receive Date: 20190627
  Receipt Date: 20190627
  Transmission Date: 20190711
  Serious: Yes (Hospitalization)
  Sender: FDA-Public Use
  Company Number: US-TEVA-2019-US-1067907

PATIENT
  Age: 50 Year
  Sex: Male

DRUGS (3)
  1. IBUPROFEN. [Suspect]
     Active Substance: IBUPROFEN
     Indication: VOMITING
  2. KINKELIBA [Suspect]
     Active Substance: HERBALS
     Indication: PHYTOTHERAPY
     Route: 065
  3. IBUPROFEN. [Suspect]
     Active Substance: IBUPROFEN
     Indication: NAUSEA
     Dosage: ADMINISTERED MULTIPLE TIMES.
     Route: 065

REACTIONS (2)
  - Acute kidney injury [Recovered/Resolved]
  - Pigment nephropathy [Recovered/Resolved]
